FAERS Safety Report 5080543-0 (Version None)
Quarter: 2006Q3

REPORT INFORMATION
  Report Type: 
  Country: None (occurrence: None)
  Receive Date: 20060720
  Receipt Date: 20050705
  Transmission Date: 20061208
  Serious: Yes (Hospitalization, Other)
  Sender: FDA-Public Use
  Company Number: 2004236365US

PATIENT
  Age: 45 Year
  Sex: Male

DRUGS (3)
  1. CELEBREX [Suspect]
     Indication: ILL-DEFINED DISORDER
     Dosage: 200 MG (200 MG, 1 IN 1 D), ORAL
     Route: 048
     Dates: start: 20010401
  2. FLEXERIL [Concomitant]
  3. SKELAXIN [Concomitant]

REACTIONS (1)
  - CEREBROVASCULAR ACCIDENT [None]
